FAERS Safety Report 6997716-X (Version None)
Quarter: 2010Q3

REPORT INFORMATION
  Report Type: 
  Country: None (occurrence: None)
  Receive Date: 20100918
  Receipt Date: 20091118
  Transmission Date: 20110219
  Serious: No
  Sender: FDA-Public Use
  Company Number: US-WYE-H12259909

PATIENT
  Sex: Female
  Weight: 59.93 kg

DRUGS (4)
  1. PRISTIQ [Suspect]
     Indication: PAIN
     Route: 048
     Dates: start: 20091101
  2. GABAPENTIN [Concomitant]
  3. ESTROGEN NOS [Concomitant]
  4. SYNTHROID [Concomitant]

REACTIONS (1)
  - DRY SKIN [None]
